FAERS Safety Report 12581165 (Version 3)
Quarter: 2016Q3

REPORT INFORMATION
  Report Type: Spontaneous
  Country: CN (occurrence: CN)
  Receive Date: 20160721
  Receipt Date: 20160915
  Transmission Date: 20161109
  Serious: Yes (Other)
  Sender: FDA-Public Use
  Company Number: CN-ABBVIE-16P-035-1682569-00

PATIENT
  Age: 14 Year
  Sex: Male

DRUGS (3)
  1. DEPAKINE CHRONO [Suspect]
     Active Substance: VALPROATE SODIUM
     Indication: EPILEPSY
     Dosage: EXTENDED RELEASE
     Route: 048
     Dates: start: 201310, end: 201512
  2. DEPAKINE CHRONO [Suspect]
     Active Substance: VALPROATE SODIUM
     Dosage: EXTENDED RELEASE
     Route: 048
     Dates: start: 201512
  3. DEPAKINE CHRONO [Suspect]
     Active Substance: VALPROATE SODIUM
     Dosage: EXTENDED RELEASE
     Route: 048

REACTIONS (6)
  - Drug ineffective [Unknown]
  - Epilepsy [Recovered/Resolved]
  - Foaming at mouth [Recovered/Resolved]
  - Muscle twitching [Recovered/Resolved]
  - Epilepsy [Recovered/Resolved]
  - Product counterfeit [Unknown]

NARRATIVE: CASE EVENT DATE: 20150705
